FAERS Safety Report 9303323 (Version 1)
Quarter: 2013Q2

REPORT INFORMATION
  Report Type: Spontaneous
  Country: US (occurrence: US)
  Receive Date: 20130522
  Receipt Date: 20130522
  Transmission Date: 20140414
  Serious: No
  Sender: FDA-Public Use
  Company Number: US-009507513-1305USA008338

PATIENT
  Age: 27 Year
  Sex: Female
  Weight: 99.32 kg

DRUGS (1)
  1. IMPLANON [Suspect]
     Indication: CONTRACEPTION
     Dosage: 1 ROD, UNK
     Route: 059
     Dates: start: 201003

REACTIONS (5)
  - Weight increased [Unknown]
  - Device difficult to use [Unknown]
  - Medical device complication [Unknown]
  - Device dislocation [Unknown]
  - Incorrect drug administration duration [Unknown]
